FAERS Safety Report 13765187 (Version 4)
Quarter: 2017Q3

REPORT INFORMATION
  Report Type: Report from Study
  Country: US (occurrence: US)
  Receive Date: 20170718
  Receipt Date: 20170821
  Transmission Date: 20171127
  Serious: No
  Sender: FDA-Public Use
  Company Number: US-ALEXION PHARMACEUTICALS INC.-A201707870

PATIENT
  Sex: Female

DRUGS (3)
  1. STRENSIQ [Suspect]
     Active Substance: ASFOTASE ALFA
     Dosage: 2 MG/KG, TIW
     Route: 058
  2. STRENSIQ [Suspect]
     Active Substance: ASFOTASE ALFA
     Indication: PRODUCT USED FOR UNKNOWN INDICATION
     Dosage: 2 MG/KG, TIW
     Route: 058
  3. STRENSIQ [Suspect]
     Active Substance: ASFOTASE ALFA
     Dosage: 0.1 MG, 3 INJECTIONS
     Route: 058

REACTIONS (4)
  - Injection site erythema [Not Recovered/Not Resolved]
  - Underdose [Recovered/Resolved]
  - Injection site pain [Not Recovered/Not Resolved]
  - Injection site swelling [Not Recovered/Not Resolved]

NARRATIVE: CASE EVENT DATE: 20170707
